FAERS Safety Report 24716911 (Version 1)
Quarter: 2024Q4

REPORT INFORMATION
  Report Type: Spontaneous
  Country: VE (occurrence: VE)
  Receive Date: 20241210
  Receipt Date: 20241210
  Transmission Date: 20250114
  Serious: Yes (Other)
  Sender: PFIZER
  Company Number: VE-PFIZER INC-PV202400159333

PATIENT
  Age: 58 Year
  Sex: Female

DRUGS (1)
  1. INLYTA [Suspect]
     Active Substance: AXITINIB
     Indication: Renal cell carcinoma
     Dosage: 10 MG, DAILY

REACTIONS (1)
  - Renal failure [Unknown]
